FAERS Safety Report 5144284-3 (Version None)
Quarter: 2006Q4

REPORT INFORMATION
  Report Type: 
  Country: None (occurrence: None)
  Receive Date: 20061030
  Receipt Date: 20061010
  Transmission Date: 20070319
  Serious: Yes (Hospitalization)
  Sender: FDA-Public Use
  Company Number: 2006001966

PATIENT
  Age: 59 Year
  Sex: Female

DRUGS (8)
  1. TARCEVA [Suspect]
     Indication: NON-SMALL CELL LUNG CANCER
     Dosage: 150 MG (QD), ORAL
     Route: 048
     Dates: start: 20060911, end: 20060927
  2. INSULIN (INSULIN) [Concomitant]
  3. ATENOLOL [Concomitant]
  4. HYDROCHOLOTHIAZIDE (HYDROCHOLORTHIAZIDE) [Concomitant]
  5. LEVOTHYROXINE SODIUM [Concomitant]
  6. ZYRTEC [Concomitant]
  7. ASPIRIN [Concomitant]
  8. BIAXIN [Concomitant]

REACTIONS (4)
  - ABDOMINAL DISTENSION [None]
  - CHRONIC OBSTRUCTIVE PULMONARY DISEASE [None]
  - CONDITION AGGRAVATED [None]
  - INTESTINAL ISCHAEMIA [None]
